FAERS Safety Report 14412732 (Version 1)
Quarter: 2018Q1

REPORT INFORMATION
  Report Type: Spontaneous
  Country: US (occurrence: US)
  Receive Date: 20180119
  Receipt Date: 20180119
  Transmission Date: 20180509
  Serious: Yes (Hospitalization)
  Sender: FDA-Public Use
  Company Number: None

PATIENT
  Age: 77 Year
  Sex: Male
  Weight: 87.7 kg

DRUGS (11)
  1. VITAMIN D [Concomitant]
     Active Substance: CHOLECALCIFEROL
  2. NORMODYNE [Concomitant]
     Active Substance: LABETALOL HYDROCHLORIDE
  3. AMLODIPINE [Concomitant]
     Active Substance: AMLODIPINE BESYLATE
  4. APIXABAN [Concomitant]
     Active Substance: APIXABAN
  5. CALCIUM [Concomitant]
     Active Substance: CALCIUM
  6. PROSCAR [Concomitant]
     Active Substance: FINASTERIDE
  7. CORTEF [Concomitant]
     Active Substance: HYDROCORTISONE
  8. NOVOLOG [Suspect]
     Active Substance: INSULIN ASPART
     Indication: DIABETES MELLITUS
     Dosage: DATE OF USE CHRONIC?16UNITS
     Route: 058
  9. AMIODARONE [Concomitant]
     Active Substance: AMIODARONE
  10. LEVEMIR [Suspect]
     Active Substance: INSULIN DETEMIR
     Indication: DIABETES MELLITUS
     Dosage: DATE USE: CHRONIC?16UNITS
     Route: 058
  11. MEVACOR [Concomitant]
     Active Substance: LOVASTATIN

REACTIONS (2)
  - Hypoglycaemia [None]
  - Incorrect dose administered [None]

NARRATIVE: CASE EVENT DATE: 20160922
